FAERS Safety Report 7645768-6 (Version None)
Quarter: 2011Q3

REPORT INFORMATION
  Report Type: 
  Country: None (occurrence: None)
  Receive Date: 20110729
  Receipt Date: 20110725
  Transmission Date: 20111222
  Serious: Yes (Other)
  Sender: FDA-Public Use
  Company Number: CH-PFIZER INC-2006118680

PATIENT
  Age: 29 Year
  Sex: Female

DRUGS (3)
  1. CYTOTEC [Suspect]
     Dosage: 1 UNK, UNK
     Route: 048
     Dates: start: 20060401, end: 20060718
  2. GESTODENE AND ETHINYL ESTRADIOL [Suspect]
     Dosage: 1 DF, 1X/DAY
     Route: 048
     Dates: start: 20060101, end: 20060718
  3. IBUPROFEN [Suspect]
     Route: 048
     Dates: start: 20060401, end: 20060718

REACTIONS (3)
  - UNINTENDED PREGNANCY [None]
  - DRUG INEFFECTIVE [None]
  - GESTATIONAL DIABETES [None]
